FAERS Safety Report 5874214-8 (Version None)
Quarter: 2008Q3

REPORT INFORMATION
  Report Type: 
  Country: None (occurrence: None)
  Receive Date: 20080908
  Receipt Date: 20080904
  Transmission Date: 20090109
  Serious: Yes (Hospitalization)
  Sender: FDA-Public Use
  Company Number: NL-JNJFOC-20080901068

PATIENT
  Sex: Female

DRUGS (3)
  1. DURAGESIC-100 [Suspect]
     Indication: PAIN
     Route: 062
  2. ACETAMINOPHEN [Concomitant]
     Dosage: MORE IF NEEDED
  3. OXYNORM [Concomitant]
     Indication: NEOPLASM

REACTIONS (6)
  - AGITATION [None]
  - ANXIETY [None]
  - CONFUSIONAL STATE [None]
  - DELIRIUM [None]
  - NARCOTIC INTOXICATION [None]
  - SEDATION [None]
